FAERS Safety Report 7792241-0 (Version None)
Quarter: 2011Q4

REPORT INFORMATION
  Report Type: 
  Country: None (occurrence: None)
  Receive Date: 20111003
  Receipt Date: 20110920
  Transmission Date: 20120403
  Serious: Yes (Hospitalization)
  Sender: FDA-Public Use
  Company Number: US-BAYER-2010-002984

PATIENT
  Age: 26 Year
  Sex: Female
  Weight: 53.061 kg

DRUGS (4)
  1. YAZ [Suspect]
     Indication: CONTRACEPTION
     Dosage: 1 NOT APPL., QD
     Route: 048
     Dates: start: 20080806, end: 20101201
  2. MAXALT-MLT [Concomitant]
     Dosage: 10 MG, PRN
     Route: 048
     Dates: start: 20080101, end: 20100101
  3. PROMETHAZINE [Concomitant]
     Dosage: 25 MG, PRN
     Route: 048
     Dates: start: 20091120
  4. YAZ [Suspect]
     Indication: PREMENSTRUAL SYNDROME

REACTIONS (7)
  - CHOLECYSTITIS CHRONIC [None]
  - BILIARY DYSKINESIA [None]
  - INJURY [None]
  - ABDOMINAL PAIN [None]
  - WEIGHT DECREASED [None]
  - DIARRHOEA [None]
  - PAIN [None]
